FAERS Safety Report 7987387-8 (Version None)
Quarter: 2011Q4

REPORT INFORMATION
  Report Type: 
  Country: None (occurrence: None)
  Receive Date: 20111216
  Receipt Date: 20110404
  Transmission Date: 20120403
  Serious: No
  Sender: FDA-Public Use
  Company Number: US-BRISTOL-MYERS SQUIBB COMPANY-15652654

PATIENT
  Age: 17 Year
  Sex: Female

DRUGS (3)
  1. CLONOPIN [Concomitant]
  2. ABILIFY [Suspect]
     Indication: PSYCHOTIC DISORDER
     Route: 048
  3. COGENTIN [Concomitant]

REACTIONS (1)
  - TREMOR [None]
